FAERS Safety Report 10617945 (Version 2)
Quarter: 2015Q1

REPORT INFORMATION
  Report Type: Spontaneous
  Country: US (occurrence: US)
  Receive Date: 20141201
  Receipt Date: 20150122
  Transmission Date: 20150720
  Serious: Yes (Hospitalization, Other)
  Sender: FDA-Public Use
  Company Number: US-GLAXOSMITHKLINE-US2014GSK029238

PATIENT
  Sex: Female
  Weight: 89.4 kg

DRUGS (4)
  1. VOTRIENT [Suspect]
     Active Substance: PAZOPANIB HYDROCHLORIDE
     Indication: RENAL CANCER
     Dosage: 800 MG, QD
     Route: 048
     Dates: start: 20140912
  2. VOTRIENT [Suspect]
     Active Substance: PAZOPANIB HYDROCHLORIDE
     Dosage: 600 MG, QD
  3. MAGNESIUM [Concomitant]
     Active Substance: MAGNESIUM
  4. MOTRIN IB [Concomitant]
     Active Substance: IBUPROFEN

REACTIONS (2)
  - Hospitalisation [Unknown]
  - Vomiting [Recovered/Resolved]
